FAERS Safety Report 20152901 (Version 1)
Quarter: 2021Q4

REPORT INFORMATION
  Report Type: Report from Study
  Country: FR (occurrence: FR)
  Receive Date: 20211206
  Receipt Date: 20211206
  Transmission Date: 20220303
  Serious: Yes (Hospitalization)
  Sender: FDA-Public Use
  Company Number: FR-PFIZER INC-202101304533

PATIENT
  Sex: Female
  Weight: 63 kg

DRUGS (2)
  1. AVIBACTAM SODIUM\CEFTAZIDIME [Suspect]
     Active Substance: AVIBACTAM SODIUM\CEFTAZIDIME
     Indication: Product used for unknown indication
     Dosage: 2 G, QD
     Dates: start: 20200124, end: 20200131
  2. COLISTIMETHATE SODIUM [Concomitant]
     Active Substance: COLISTIMETHATE SODIUM
     Dosage: UNK

REACTIONS (2)
  - Drug reaction with eosinophilia and systemic symptoms [Not Recovered/Not Resolved]
  - Toxic epidermal necrolysis [Unknown]

NARRATIVE: CASE EVENT DATE: 20200201
